FAERS Safety Report 5140521-X (Version None)
Quarter: 2006Q4

REPORT INFORMATION
  Report Type: 
  Country: None (occurrence: None)
  Receive Date: 20061027
  Receipt Date: 20061027
  Transmission Date: 20070319
  Serious: Yes (Life-Threatening)
  Sender: FDA-Public Use
  Company Number: None

PATIENT
  Age: 36 Year
  Sex: Female
  Weight: 84.4 kg

DRUGS (15)
  1. SEROQUEL [Suspect]
     Indication: AGITATION
     Dosage: 75 MG TID PO
     Route: 048
     Dates: start: 20060717, end: 20060801
  2. SEROQUEL [Suspect]
     Indication: DETOXIFICATION
     Dosage: 75 MG TID PO
     Route: 048
     Dates: start: 20060717, end: 20060801
  3. PROZAC [Concomitant]
  4. ZYPREXA [Concomitant]
  5. AMBIEN [Concomitant]
  6. LEVAQUIN [Concomitant]
  7. ZYVOX [Concomitant]
  8. CLINDAMYCIN [Concomitant]
  9. RIFAMPIN [Concomitant]
  10. VANCOMYCIN [Concomitant]
  11. DIFLUCAN [Concomitant]
  12. PHENOBARBITAL TAB [Concomitant]
  13. HYDRALAZINE HCL [Concomitant]
  14. PROTONIX [Concomitant]
  15. DEPO-PROVERA [Concomitant]

REACTIONS (1)
  - LEFT VENTRICULAR FAILURE [None]
